FAERS Safety Report 4408277-3 (Version None)
Quarter: 2004Q3

REPORT INFORMATION
  Report Type: 
  Country: None (occurrence: None)
  Receive Date: 20040722
  Receipt Date: 20040709
  Transmission Date: 20050211
  Serious: Yes (Hospitalization)
  Sender: FDA-Public Use
  Company Number: FR-JNJFOC-20040702399

PATIENT
  Age: 48 Year
  Sex: Female
  Weight: 62 kg

DRUGS (6)
  1. REMICADE [Suspect]
     Indication: RHEUMATOID ARTHRITIS
     Dosage: SEE IMAGE
     Dates: start: 20020819, end: 20040608
  2. METHOTREXATE [Suspect]
     Indication: RHEUMATOID ARTHRITIS
     Dosage: 15 MG, 1 IN 1 WEEK, ORAL
     Route: 048
     Dates: start: 19980515
  3. PREDNISONE TAB [Suspect]
     Indication: RHEUMATOID ARTHRITIS
     Dosage: 5 MG, 1 IN 1 DAY, ORAL
     Route: 048
     Dates: start: 20010615
  4. NAPROSYN [Suspect]
     Indication: RHEUMATOID ARTHRITIS
     Dosage: ORAL
     Route: 048
     Dates: start: 19960115
  5. FOLIC ACID [Concomitant]
  6. PROPOFAN (PROPOFAN) [Concomitant]

REACTIONS (7)
  - ASTHENIA [None]
  - COUGH [None]
  - DRUG INTERACTION [None]
  - HYPERHIDROSIS [None]
  - LOBAR PNEUMONIA [None]
  - LUNG DISORDER [None]
  - TUBERCULOSIS [None]
